FAERS Safety Report 9931419 (Version 1)
Quarter: 2014Q1

REPORT INFORMATION
  Report Type: Spontaneous
  Country: AT (occurrence: AT)
  Receive Date: 20140228
  Receipt Date: 20140228
  Transmission Date: 20141002
  Serious: Yes (Hospitalization)
  Sender: FDA-Public Use
  Company Number: AT-BRISTOL-MYERS SQUIBB COMPANY-20270989

PATIENT
  Age: 54 Year
  Sex: Male
  Weight: 70 kg

DRUGS (6)
  1. FORXIGA [Suspect]
     Indication: DIABETES MELLITUS
     Route: 048
     Dates: start: 20131212
  2. INSULIN [Suspect]
  3. LANTUS [Concomitant]
     Dosage: 1DF:0-0-26
     Dates: start: 200912
  4. NOVORAPID [Concomitant]
     Dosage: 51E PER MEAL
     Dates: start: 201010
  5. NEBIVOLOL [Concomitant]
     Dates: start: 201306
  6. LISINOPRIL + HCTZ [Concomitant]
     Dosage: 1DF:10/12.5
     Dates: start: 201306

REACTIONS (1)
  - Hypoglycaemic coma [Unknown]
